FAERS Safety Report 4751459-1 (Version None)
Quarter: 2005Q3

REPORT INFORMATION
  Report Type: 
  Country: None (occurrence: None)
  Receive Date: 20050824
  Receipt Date: 20050607
  Transmission Date: 20060218
  Serious: Yes (Hospitalization)
  Sender: FDA-Public Use
  Company Number: US-MERCK-0506USA01415

PATIENT
  Age: 60 Year
  Sex: Female
  Weight: 84 kg

DRUGS (5)
  1. VIOXX [Suspect]
     Indication: OSTEOARTHRITIS
     Route: 048
     Dates: start: 19990601, end: 19990701
  2. VIOXX [Suspect]
     Route: 048
     Dates: start: 19990701, end: 20040901
  3. VIOXX [Suspect]
     Indication: RHEUMATOID ARTHRITIS
     Route: 048
     Dates: start: 19990601, end: 19990701
  4. VIOXX [Suspect]
     Route: 048
     Dates: start: 19990701, end: 20040901
  5. METHOTREXATE [Concomitant]
     Route: 065
     Dates: start: 19920101, end: 20031001

REACTIONS (5)
  - ADVERSE EVENT [None]
  - GALLBLADDER DISORDER [None]
  - MYOCARDIAL INFARCTION [None]
  - PNEUMONIA [None]
  - ROTATOR CUFF SYNDROME [None]
